FAERS Safety Report 9108816 (Version 4)
Quarter: 2019Q2

REPORT INFORMATION
  Report Type: Spontaneous
  Country: US (occurrence: US)
  Receive Date: 20130222
  Receipt Date: 20190606
  Transmission Date: 20190711
  Serious: Yes (Other)
  Sender: FDA-Public Use
  Company Number: US-PFIZER INC-2013065322

PATIENT
  Age: 45 Year
  Sex: Female
  Weight: 52.15 kg

DRUGS (5)
  1. LYRICA [Suspect]
     Active Substance: PREGABALIN
     Indication: FIBROMYALGIA
     Dosage: 200 MG, 3X/DAY
     Dates: start: 2008
  2. CHANTIX [Suspect]
     Active Substance: VARENICLINE TARTRATE
     Dosage: UNK
  3. METHOCARBAMOL. [Concomitant]
     Active Substance: METHOCARBAMOL
     Indication: BACK PAIN
     Dosage: UNK
     Route: 048
  4. LYRICA [Suspect]
     Active Substance: PREGABALIN
     Dosage: 300 MG, 3X/DAY(TAKE 1 CAPSULE (300 MG TOTAL) BY MOUTH 3 TIMES A DAY)
     Route: 048
     Dates: start: 20190528
  5. PRISTIQ EXTENDED-RELEASE [Suspect]
     Active Substance: DESVENLAFAXINE SUCCINATE
     Dosage: UNK

REACTIONS (10)
  - Cerebral haemorrhage [Unknown]
  - Skull fracture [Unknown]
  - Pre-existing condition improved [Unknown]
  - Memory impairment [Unknown]
  - Road traffic accident [Unknown]
  - Therapeutic response unexpected [Unknown]
  - Head injury [Unknown]
  - Headache [Unknown]
  - Haematoma [Unknown]
  - Overdose [Unknown]

NARRATIVE: CASE EVENT DATE: 2013
